FAERS Safety Report 7042071-2 (Version None)
Quarter: 2010Q4

REPORT INFORMATION
  Report Type: 
  Country: None (occurrence: None)
  Receive Date: 20101013
  Receipt Date: 20100712
  Transmission Date: 20110411
  Serious: No
  Sender: FDA-Public Use
  Company Number: US-ASTRAZENECA-2010SE32309

PATIENT
  Age: 87 Year
  Sex: Female

DRUGS (7)
  1. SYMBICORT [Suspect]
     Indication: PNEUMONIA
     Dosage: 160/4.5 TWO PUFFS
     Route: 055
     Dates: start: 20100701
  2. ALBUTEROL [Concomitant]
     Indication: DEVICE THERAPY
  3. IPRATROPIUM BROMIDE [Concomitant]
     Dosage: THREE TIMES A DAY
  4. FLUTICASONE PROPIONATE [Concomitant]
     Route: 045
  5. EYE DROPS [Concomitant]
     Indication: MACULAR DEGENERATION
  6. AIREDS [Concomitant]
     Indication: ILL-DEFINED DISORDER
  7. SYNTHROID [Concomitant]
     Indication: THYROID DISORDER

REACTIONS (1)
  - DYSPNOEA [None]
